FAERS Safety Report 9372889 (Version 2)
Quarter: 2013Q2

REPORT INFORMATION
  Report Type: Spontaneous
  Country: JP (occurrence: None)
  Receive Date: 20130614
  Receipt Date: 20130626
  Transmission Date: 20140414
  Serious: Yes (Other)
  Sender: FDA-Public Use
  Company Number: 0239298

PATIENT
  Age: 61 Year
  Sex: Male

DRUGS (1)
  1. TACHOSIL [Suspect]
     Indication: FISTULA REPAIR
     Dosage: (1 SHEET OF REGULAR SIZE) STOPPED?
     Dates: start: 20121113

REACTIONS (2)
  - Pulmonary fistula [None]
  - Drug ineffective [None]
